FAERS Safety Report 6756343-X (Version None)
Quarter: 2010Q2

REPORT INFORMATION
  Report Type: 
  Country: None (occurrence: None)
  Receive Date: 20100604
  Receipt Date: 20100525
  Transmission Date: 20101027
  Serious: Yes (Life-Threatening)
  Sender: FDA-Public Use
  Company Number: RU-ROCHE-705097

PATIENT
  Sex: Female

DRUGS (4)
  1. CELLCEPT [Suspect]
     Indication: DRUG USE FOR UNKNOWN INDICATION
     Route: 065
  2. RECORMON [Suspect]
     Indication: DRUG USE FOR UNKNOWN INDICATION
     Route: 058
     Dates: start: 20100412, end: 20100419
  3. ISOPTIN [Concomitant]
     Route: 048
  4. COSMOFER [Concomitant]

REACTIONS (1)
  - ANGIOEDEMA [None]
